FAERS Safety Report 23118866 (Version 1)
Quarter: 2023Q4

REPORT INFORMATION
  Report Type: Spontaneous
  Country: GB (occurrence: GB)
  Receive Date: 20231028
  Receipt Date: 20231028
  Transmission Date: 20240110
  Serious: Yes (Other)
  Sender: FDA-Public Use
  Company Number: None

PATIENT
  Age: 76 Year
  Sex: Female
  Weight: 70 kg

DRUGS (3)
  1. AMLODIPINE [Suspect]
     Active Substance: AMLODIPINE BESYLATE
     Indication: Hypertension
     Dosage: 1 DOSAGE FORMS DAILY; ONE TO BE TAKEN EACH DAY, DURATION: 147 DAYS
     Route: 065
     Dates: start: 20230313
  2. CANDESARTAN [Concomitant]
     Active Substance: CANDESARTAN
     Indication: Hypertension
     Dosage: 1 DOSAGE FORMS DAILY; ONE TO BE TAKEN EACH DAY
     Dates: start: 20230519
  3. COMIRNATY ORIGINAL/OMICRON BA.4/5 [Concomitant]
     Indication: Product used for unknown indication
     Dosage: UNIT DOSE:0.3ML
     Route: 030
     Dates: start: 20230517, end: 20230517

REACTIONS (1)
  - Joint swelling [Unknown]
